FAERS Safety Report 18085188 (Version 1)
Quarter: 2020Q3

REPORT INFORMATION
  Report Type: Spontaneous
  Country: US (occurrence: US)
  Receive Date: 20200728
  Receipt Date: 20200728
  Transmission Date: 20201103
  Serious: Yes (Other)
  Sender: FDA-Public Use
  Company Number: None

PATIENT

DRUGS (1)
  1. REMDESIVIR. [Suspect]
     Active Substance: REMDESIVIR

REACTIONS (3)
  - Cardio-respiratory arrest [None]
  - Renal impairment [None]
  - Hepatic function abnormal [None]

NARRATIVE: CASE EVENT DATE: 20200727
